FAERS Safety Report 17700172 (Version 5)
Quarter: 2020Q2

REPORT INFORMATION
  Report Type: Report from Study
  Country: US (occurrence: US)
  Receive Date: 20200423
  Receipt Date: 20200512
  Transmission Date: 20200714
  Serious: Yes (Hospitalization)
  Sender: FDA-Public Use
  Company Number: US-ACTELION-A-US2020-203336

PATIENT
  Sex: Female
  Weight: 56.24 kg

DRUGS (6)
  1. VENTAVIS [Suspect]
     Active Substance: ILOPROST
     Indication: PULMONARY ARTERIAL HYPERTENSION
     Dosage: 5.0 MCG, 6-9X DAILY
     Route: 055
  2. DILTIAZEM. [Concomitant]
     Active Substance: DILTIAZEM
  3. AMBRISENTAN [Suspect]
     Active Substance: AMBRISENTAN
     Indication: PRODUCT USED FOR UNKNOWN INDICATION
     Dosage: 10 MG, QD
     Route: 048
     Dates: start: 20170112
  4. TADALAFIL. [Concomitant]
     Active Substance: TADALAFIL
  5. VENTAVIS [Suspect]
     Active Substance: ILOPROST
     Dosage: 2.5 MCG
     Route: 055
  6. XARELTO [Concomitant]
     Active Substance: RIVAROXABAN

REACTIONS (3)
  - Blood count abnormal [Unknown]
  - Anaemia [Unknown]
  - Nervousness [Recovering/Resolving]
